FAERS Safety Report 9118697 (Version 2)
Quarter: 2013Q1

REPORT INFORMATION
  Report Type: Spontaneous
  Country: US (occurrence: None)
  Receive Date: 20130130
  Receipt Date: 20130308
  Transmission Date: 20140127
  Serious: Yes (Death, Hospitalization)
  Sender: FDA-Public Use
  Company Number: UTC-027644

PATIENT
  Sex: Female

DRUGS (1)
  1. REMODULIN (INJECTION FOR INFUSION) (TREPROSTINIL SODIUM) [Suspect]
     Indication: PULMONARY ARTERIAL HYPERTENSION
     Dosage: 2 TO 5 YEARS AGO - 06/19/2009
     Dates: start: 20070125

REACTIONS (4)
  - Overdose [None]
  - Cardio-respiratory arrest [None]
  - Right ventricular failure [None]
  - Condition aggravated [None]
